FAERS Safety Report 22082654 (Version 2)
Quarter: 2023Q1

REPORT INFORMATION
  Report Type: Spontaneous
  Country: DE (occurrence: None)
  Receive Date: 20230310
  Receipt Date: 20230314
  Transmission Date: 20230417
  Serious: Yes (Other)
  Sender: FDA-Public Use
  Company Number: DE-ROCHE-3298976

PATIENT
  Age: 3 Year
  Sex: Male
  Weight: 12.4 kg

DRUGS (1)
  1. EVRYSDI [Suspect]
     Active Substance: RISDIPLAM
     Indication: Spinal muscular atrophy
     Dosage: 4.2 ML
     Route: 048
     Dates: start: 202206

REACTIONS (2)
  - Atelectasis [Recovered/Resolved]
  - Pneumonia [Recovered/Resolved]
